FAERS Safety Report 10056047 (Version 1)
Quarter: 2014Q2

REPORT INFORMATION
  Report Type: Spontaneous
  Country: US (occurrence: US)
  Receive Date: 20140403
  Receipt Date: 20140403
  Transmission Date: 20141212
  Serious: Yes (Hospitalization)
  Sender: FDA-Public Use
  Company Number: US-SA-2014SA036256

PATIENT
  Age: 58 Year
  Sex: Female
  Weight: 105.2 kg

DRUGS (24)
  1. ARAVA [Suspect]
     Indication: PRODUCT USED FOR UNKNOWN INDICATION
     Route: 065
  2. ENBREL [Suspect]
     Indication: RHEUMATOID ARTHRITIS
     Dosage: SOLUTION FOR INJECTION IN PREFILLED SYRINGE
     Route: 058
     Dates: start: 20120501, end: 20130219
  3. BACTROBAN [Concomitant]
  4. NEXIUM [Concomitant]
  5. DICLOFENAC SODIUM [Concomitant]
     Dates: start: 20130411
  6. PATANOL [Concomitant]
  7. IMMUNOGLOBULIN G HUMAN [Concomitant]
  8. SERTRALINE HYDROCHLORIDE [Concomitant]
  9. LEVOCETIRIZINE DIHYDROCHLORIDE [Concomitant]
  10. DIAZEPAM [Concomitant]
  11. ADVAIR [Concomitant]
  12. ZYRTEC [Concomitant]
  13. ALL OTHER THERAPEUTIC PRODUCTS [Concomitant]
  14. VITAMIN D [Concomitant]
  15. VITAMIN E [Concomitant]
  16. VITAMIN C [Concomitant]
  17. CALCIUM/VITAMIN D [Concomitant]
  18. MUCINEX [Concomitant]
  19. CICLESONIDE [Concomitant]
  20. LEVOTHYROXINE SODIUM [Concomitant]
  21. SUDAFED [Concomitant]
  22. OLOPATADINE HYDROCHLORIDE [Concomitant]
  23. PARACETAMOL/TRAMADOL HYDROCHLORIDE [Concomitant]
     Dates: start: 20140116
  24. FLUTICASONE FUROATE [Concomitant]

REACTIONS (35)
  - Lymphadenitis bacterial [Unknown]
  - Cellulitis [Recovered/Resolved]
  - Cellulitis streptococcal [Recovered/Resolved]
  - Osteoarthritis [Unknown]
  - Pain [Unknown]
  - Arthralgia [Unknown]
  - Fatigue [Unknown]
  - Sleep disorder [Unknown]
  - Arthropathy [Unknown]
  - Rash [Recovered/Resolved]
  - Dry eye [Unknown]
  - Tinnitus [Unknown]
  - Dry mouth [Unknown]
  - Cough [Recovered/Resolved]
  - Dyspepsia [Recovered/Resolved]
  - Myalgia [Unknown]
  - Muscular weakness [Unknown]
  - Polydipsia [Unknown]
  - Polyuria [Unknown]
  - Lymph node pain [Unknown]
  - Joint stiffness [Unknown]
  - Joint swelling [Unknown]
  - Hypoaesthesia [Unknown]
  - Paraesthesia [Unknown]
  - Blood glucose abnormal [Unknown]
  - Chest pain [Recovered/Resolved]
  - Lymphadenopathy [Unknown]
  - Neuropathy peripheral [Recovering/Resolving]
  - Pyrexia [Recovered/Resolved]
  - Headache [Recovered/Resolved]
  - Vomiting [Recovered/Resolved]
  - Diarrhoea [Unknown]
  - Nausea [Recovered/Resolved]
  - Alopecia [Unknown]
  - Mouth ulceration [Unknown]
